FAERS Safety Report 5583926-5 (Version None)
Quarter: 2008Q1

REPORT INFORMATION
  Report Type: 
  Country: None (occurrence: None)
  Receive Date: 20080103
  Receipt Date: 20080103
  Transmission Date: 20080703
  Serious: Yes (Hospitalization)
  Sender: FDA-Public Use
  Company Number: None

PATIENT
  Sex: Female
  Weight: 55.5 kg

DRUGS (4)
  1. CISPLATIN [Suspect]
     Dosage: 72 MG
  2. TOPOTECAN [Suspect]
     Dosage: 3 MG
  3. DIOVAN [Concomitant]
  4. HYDROXYUREA [Concomitant]

REACTIONS (3)
  - ELECTROLYTE IMBALANCE [None]
  - MENTAL STATUS CHANGES [None]
  - PULMONARY EMBOLISM [None]
